FAERS Safety Report 12365048 (Version 1)
Quarter: 2016Q2

REPORT INFORMATION
  Report Type: Spontaneous
  Country: US (occurrence: US)
  Receive Date: 20160512
  Receipt Date: 20160512
  Transmission Date: 20160815
  Serious: Yes (Death, Other)
  Sender: FDA-Public Use
  Company Number: US-TEVA-658432USA

PATIENT
  Sex: Female

DRUGS (1)
  1. ENOXAPARIN [Suspect]
     Active Substance: ENOXAPARIN
     Indication: THROMBOSIS
     Dosage: 60 MG/0.6 ML
     Dates: start: 201505, end: 20151104

REACTIONS (2)
  - Hepatic cancer [Fatal]
  - Gastric cancer [Fatal]
